FAERS Safety Report 15992413 (Version 1)
Quarter: 2019Q1

REPORT INFORMATION
  Report Type: Spontaneous
  Country: FR (occurrence: FR)
  Receive Date: 20190221
  Receipt Date: 20190221
  Transmission Date: 20190418
  Serious: Yes (Hospitalization)
  Sender: FDA-Public Use
  Company Number: FR-TEVA-2019-FR-1013480

PATIENT
  Age: 39 Year
  Sex: Female
  Weight: 76 kg

DRUGS (6)
  1. KETOPROFENE [Suspect]
     Active Substance: KETOPROFEN
     Indication: BACK PAIN
     Route: 048
     Dates: start: 20161007, end: 20161010
  2. PANTOPRAZOLE [Suspect]
     Active Substance: PANTOPRAZOLE
     Indication: GASTROOESOPHAGEAL REFLUX PROPHYLAXIS
     Route: 048
     Dates: start: 20161007, end: 20161010
  3. ALPRAZOLAM. [Suspect]
     Active Substance: ALPRAZOLAM
     Indication: ANXIETY
     Route: 048
     Dates: start: 20161007, end: 20161010
  4. SOLUPRED [Concomitant]
  5. ALTIM 3,75 MG/1,5 ML, SUSPENSION INJECTABLE EN SERINGUE PR?-REMPLIE [Suspect]
     Active Substance: CORTIVAZOL
     Indication: BACK PAIN
     Dosage: ALTIM 3.75 MG / 1.5 ML SUSPENSION FOR INJECTION IN PRE-FILLED SYRINGE
     Route: 051
     Dates: start: 20161006, end: 20161006
  6. CLARADOL [Suspect]
     Active Substance: ACETAMINOPHEN
     Indication: BACK PAIN
     Route: 048
     Dates: start: 20161007, end: 20161010

REACTIONS (2)
  - Rash maculo-papular [Recovered/Resolved]
  - Eosinophilia [Recovered/Resolved]

NARRATIVE: CASE EVENT DATE: 20161008
